FAERS Safety Report 24707179 (Version 1)
Quarter: 2024Q4

REPORT INFORMATION
  Report Type: Spontaneous
  Country: FI (occurrence: FI)
  Receive Date: 20241206
  Receipt Date: 20241206
  Transmission Date: 20250115
  Serious: Yes (Death)
  Sender: TEVA
  Company Number: None

PATIENT
  Sex: Female

DRUGS (4)
  1. EPIRUBICIN [Suspect]
     Active Substance: EPIRUBICIN
     Indication: Breast cancer
     Dosage: CEF COURSE (9 TIMES) FOR BREAST CANCER. / CEF COURSE (9 TIMES) FOR BREAST CANCER.
     Route: 065
     Dates: start: 19931112, end: 199405
  2. EPIRUBICIN [Suspect]
     Active Substance: EPIRUBICIN
     Indication: Breast cancer
     Dosage: LATER IN 1995, AFTER BEING DIAGNOSED WITH BONE METASTASES, RECEIVED 7 MORE COURSES. /LATER IN 199...
     Route: 065
     Dates: start: 1995
  3. FLUOROURACIL [Concomitant]
     Active Substance: FLUOROURACIL
     Indication: Breast cancer
     Dosage: CEF COURSE (9 TIMES) FOR BREAST CANCER. LATER IN 1995, AFTER BEING DIAGNOSED WITH BONE METASTASES...
     Route: 065
     Dates: start: 19931112, end: 199405
  4. CYCLOPHOSPHAMIDE [Concomitant]
     Active Substance: CYCLOPHOSPHAMIDE
     Indication: Breast cancer
     Dosage: CEF COURSE (9 TIMES) FOR BREAST CANCER. LATER IN 1995, AFTER BEING DIAGNOSED WITH BONE METASTASES...
     Route: 065
     Dates: start: 19931112, end: 199405

REACTIONS (2)
  - Cardiac failure [Fatal]
  - Toxic cardiomyopathy [Fatal]

NARRATIVE: CASE EVENT DATE: 19960101
